FAERS Safety Report 9783885 (Version 2)
Quarter: 2013Q4

REPORT INFORMATION
  Report Type: Report from Study
  Country: US (occurrence: US)
  Receive Date: 20131226
  Receipt Date: 20131226
  Transmission Date: 20140711
  Serious: Yes (Hospitalization, Other)
  Sender: FDA-Public Use
  Company Number: US-PURDUE-USA-2013-0108721

PATIENT
  Age: 53 Year
  Sex: Male
  Weight: 94.33 kg

DRUGS (3)
  1. OXY CR TAB [Suspect]
     Indication: OSTEOARTHRITIS
     Dosage: 160 MG, Q12H
     Route: 048
     Dates: start: 201106, end: 20131108
  2. OXY CR TAB [Suspect]
     Indication: OSTEOARTHRITIS
  3. TEMAZEPAM [Concomitant]
     Indication: PRODUCT USED FOR UNKNOWN INDICATION
     Dosage: UNK

REACTIONS (11)
  - Drug withdrawal syndrome [Not Recovered/Not Resolved]
  - Hospitalisation [Recovered/Resolved]
  - Staphylococcal infection [Unknown]
  - Alcohol abuse [Recovered/Resolved]
  - Bone disorder [Unknown]
  - Immobile [Not Recovered/Not Resolved]
  - Chills [Not Recovered/Not Resolved]
  - Depression [Unknown]
  - Anxiety [Unknown]
  - Insomnia [Unknown]
  - Gait disturbance [Unknown]
